FAERS Safety Report 10867461 (Version 7)
Quarter: 2016Q1

REPORT INFORMATION
  Report Type: Report from Study
  Country: US (occurrence: US)
  Receive Date: 20150225
  Receipt Date: 20160128
  Transmission Date: 20160525
  Serious: Yes (Disabling)
  Sender: FDA-Public Use
  Company Number: US-SA-2013SA095462

PATIENT
  Age: 55 Year
  Sex: Female
  Weight: 271 kg

DRUGS (15)
  1. CALCIUM [Concomitant]
     Active Substance: CALCIUM
  2. RITALIN [Concomitant]
     Active Substance: METHYLPHENIDATE HYDROCHLORIDE
     Dosage: DOSE:LA 20 MG
  3. PRILOSEC [Concomitant]
     Active Substance: OMEPRAZOLE MAGNESIUM
  4. ESTRACE [Concomitant]
     Active Substance: ESTRADIOL
  5. TRAMADOL. [Concomitant]
     Active Substance: TRAMADOL
     Dosage: DOSE:300 MG ER 1@LUNCH QD
  6. SYMBICORT [Concomitant]
     Active Substance: BUDESONIDE\FORMOTEROL FUMARATE DIHYDRATE
     Dosage: DOSE:2 PUFF(S)
  7. AMPYRA [Suspect]
     Active Substance: DALFAMPRIDINE
     Indication: GAIT DISTURBANCE
     Dosage: STRENGTH 10 MG
     Route: 048
  8. SINGULAIR [Concomitant]
     Active Substance: MONTELUKAST SODIUM
  9. AUBAGIO [Suspect]
     Active Substance: TERIFLUNOMIDE
     Indication: MULTIPLE SCLEROSIS
     Route: 048
  10. GABAPENTIN. [Concomitant]
     Active Substance: GABAPENTIN
     Dosage: DOSE:4 PILSS 1AM 1 LUNCH 2 P.M.
  11. AUBAGIO [Suspect]
     Active Substance: TERIFLUNOMIDE
     Indication: MULTIPLE SCLEROSIS
     Route: 048
     Dates: start: 20130809
  12. AUBAGIO [Suspect]
     Active Substance: TERIFLUNOMIDE
     Indication: MULTIPLE SCLEROSIS
     Route: 048
     Dates: start: 20130809
  13. AUBAGIO [Suspect]
     Active Substance: TERIFLUNOMIDE
     Indication: MULTIPLE SCLEROSIS
     Route: 048
     Dates: start: 20130829, end: 20151124
  14. TOPROL XL [Concomitant]
     Active Substance: METOPROLOL SUCCINATE
     Dosage: FREQUENCY:1@AM AND1 @ PM
  15. VENTOLINE [Concomitant]
     Active Substance: ALBUTEROL

REACTIONS (17)
  - Asthenia [Unknown]
  - Blood pressure increased [Recovered/Resolved]
  - Urinary incontinence [Unknown]
  - Alopecia [Recovering/Resolving]
  - Bladder disorder [Unknown]
  - Burning sensation [Not Recovered/Not Resolved]
  - Unevaluable event [Unknown]
  - Pain in extremity [Unknown]
  - Hypokinesia [Not Recovered/Not Resolved]
  - Anal incontinence [Unknown]
  - Speech disorder [Not Recovered/Not Resolved]
  - Gait disturbance [Not Recovered/Not Resolved]
  - Nausea [Unknown]
  - Abdominal pain lower [Unknown]
  - Headache [Recovered/Resolved]
  - Abdominal discomfort [Unknown]
  - Diarrhoea [Recovering/Resolving]

NARRATIVE: CASE EVENT DATE: 201309
